FAERS Safety Report 10654872 (Version 2)
Quarter: 2015Q1

REPORT INFORMATION
  Report Type: Report from Study
  Country: US (occurrence: US)
  Receive Date: 20141216
  Receipt Date: 20150107
  Transmission Date: 20150720
  Serious: Yes (Other)
  Sender: FDA-Public Use
  Company Number: US-BAXTER-2014BAX072597

PATIENT
  Sex: Male
  Weight: 19.98 kg

DRUGS (1)
  1. ADVATE [Suspect]
     Active Substance: ANTIHEMOPHILIC FACTOR, HUMAN RECOMBINANT
     Indication: FACTOR VIII DEFICIENCY
     Dosage: 400-500 UNITS
     Route: 042

REACTIONS (3)
  - Pyrexia [Recovered/Resolved]
  - Haemorrhage [Recovered/Resolved]
  - Pain [Unknown]
